FAERS Safety Report 7715385-8 (Version None)
Quarter: 2011Q3

REPORT INFORMATION
  Report Type: 
  Country: None (occurrence: None)
  Receive Date: 20110829
  Receipt Date: 20110815
  Transmission Date: 20111222
  Serious: Yes (Other)
  Sender: FDA-Public Use
  Company Number: US-ELI_LILLY_AND_COMPANY-US201002006767

PATIENT
  Sex: Female

DRUGS (25)
  1. VITAMIN D [Concomitant]
     Dosage: 1000 IU, UNK
  2. VIGAMOX [Concomitant]
     Dosage: 1 D/F, 3/D
  3. FORTEO [Suspect]
     Indication: OSTEOPOROSIS
     Dosage: 20 UG, DAILY (1/D)
     Dates: start: 20100212
  4. NORTRIPTYLINE HCL [Concomitant]
     Dosage: 10 MG, DAILY (1/D)
  5. GABAPENTINE [Concomitant]
     Dosage: 300 MG, 2/D
  6. TRAMADOL HCL [Concomitant]
     Dosage: 100 MG, AS NEEDED
  7. XOPENEX HFA [Concomitant]
     Dosage: 90 UG, AS NEEDED 4-6 HRS
  8. POTASSIUM CHLORIDE [Concomitant]
     Dosage: 10 MEQ, DAILY (1/D)
  9. PREDNISONE [Concomitant]
     Dosage: 2.5 MG, DAILY (1/D)
  10. FORTEO [Suspect]
     Dosage: 20 UG, DAILY (1/D)
  11. FORTEO [Suspect]
     Dosage: 20 UG, DAILY (1/D)
  12. FORTEO [Suspect]
     Dosage: 20 UG, QD
     Route: 065
  13. NORVASC [Concomitant]
     Indication: BLOOD PRESSURE ABNORMAL
     Dosage: 2.5 MG, DAILY (1/D)
  14. CALCARB WITH VITAMIN D [Concomitant]
     Dosage: UNK, DAILY (1/D)
  15. THIAMINE /00056102/ [Concomitant]
     Dosage: 100 MG, DAILY (1/D)
  16. NASONEX [Concomitant]
     Dosage: 4 D/F, DAILY (1/D)
  17. SPIRIVA [Concomitant]
     Dosage: 18 UG, DAILY (1/D)
     Route: 055
  18. HYDROCHLOROTHIAZIDE [Concomitant]
     Dosage: 12.5 MG, DAILY (1/D)
  19. NEVANAC [Concomitant]
     Dosage: 1 D/F, 3/D
  20. FORTEO [Suspect]
     Dosage: 20 UG, DAILY (1/D)
  21. MULTI-VITAMIN [Concomitant]
     Dosage: UNK, DAILY (1/D)
  22. TOPROL-XL [Concomitant]
     Dosage: 50 MG, DAILY (1/D)
  23. FORTEO [Suspect]
     Dosage: 20 UG, DAILY (1/D)
  24. FORTEO [Suspect]
     Dosage: 20 UG, DAILY (1/D)
  25. FOLIC ACID [Concomitant]
     Dosage: 1 MG, DAILY (1/D)

REACTIONS (27)
  - DECREASED APPETITE [None]
  - MEDICATION ERROR [None]
  - MUSCULAR WEAKNESS [None]
  - DIZZINESS [None]
  - HIP FRACTURE [None]
  - CATARACT [None]
  - MYALGIA [None]
  - PAIN OF SKIN [None]
  - OROPHARYNGEAL PAIN [None]
  - VOMITING [None]
  - NAUSEA [None]
  - PAIN IN EXTREMITY [None]
  - BLOOD PRESSURE INCREASED [None]
  - CONSTIPATION [None]
  - PAIN [None]
  - HYPERHIDROSIS [None]
  - BACK PAIN [None]
  - PAIN IN JAW [None]
  - MALAISE [None]
  - ABDOMINAL PAIN UPPER [None]
  - DIARRHOEA [None]
  - ARTHRALGIA [None]
  - MUSCLE SPASMS [None]
  - BONE PAIN [None]
  - APHONIA [None]
  - FATIGUE [None]
  - ASTHENIA [None]
